FAERS Safety Report 13078008 (Version 1)
Quarter: 2017Q1

REPORT INFORMATION
  Report Type: Spontaneous
  Country: US (occurrence: US)
  Receive Date: 20170102
  Receipt Date: 20170102
  Transmission Date: 20170428
  Serious: Yes (Hospitalization)
  Sender: FDA-Public Use
  Company Number: US-AMGEN-USASP2016184556

PATIENT
  Age: 69 Year
  Sex: Male

DRUGS (8)
  1. PREDNISONE. [Concomitant]
     Active Substance: PREDNISONE
     Dosage: 15 MG, QD
  2. PEG 3350 [Concomitant]
     Active Substance: POLYETHYLENE GLYCOL 3350
     Dosage: UNK, POWDER
  3. FOLIC ACID. [Concomitant]
     Active Substance: FOLIC ACID
     Dosage: 20 MG, UNK
  4. ENBREL [Suspect]
     Active Substance: ETANERCEPT
     Dosage: UNK
     Route: 065
     Dates: start: 20161221
  5. METHOTREXATE. [Concomitant]
     Active Substance: METHOTREXATE
     Dosage: 2.5 MG, UNK
     Dates: end: 201610
  6. PREDNISONE. [Concomitant]
     Active Substance: PREDNISONE
     Dosage: 25 MG, QWK
  7. ENBREL [Suspect]
     Active Substance: ETANERCEPT
     Indication: RHEUMATOID ARTHRITIS
     Dosage: 50 MG, QWK
     Route: 058
     Dates: start: 20140909, end: 201610
  8. OMEPRAZOLE. [Concomitant]
     Active Substance: OMEPRAZOLE
     Dosage: 20 MG, UNK

REACTIONS (2)
  - Pain in extremity [Not Recovered/Not Resolved]
  - Pneumonia [Not Recovered/Not Resolved]

NARRATIVE: CASE EVENT DATE: 201610
